FAERS Safety Report 17010490 (Version 2)
Quarter: 2019Q4

REPORT INFORMATION
  Report Type: Spontaneous
  Country: US (occurrence: US)
  Receive Date: 20191108
  Receipt Date: 20191205
  Transmission Date: 20200122
  Serious: Yes (Other)
  Sender: FDA-Public Use
  Company Number: US-BIOCODEX SA-201901236

PATIENT
  Sex: Female

DRUGS (2)
  1. DIACOMIT [Suspect]
     Active Substance: STIRIPENTOL
     Dosage: 500MG TWICE A DAY
     Route: 065
  2. DIACOMIT [Suspect]
     Active Substance: STIRIPENTOL
     Indication: PRODUCT USED FOR UNKNOWN INDICATION
     Dosage: 250MG TWICE A DAY
     Route: 065
     Dates: start: 20190531

REACTIONS (6)
  - Eating disorder [Unknown]
  - Seizure [Recovered/Resolved]
  - Decreased appetite [Unknown]
  - Sleep disorder [Unknown]
  - Psychomotor hyperactivity [Unknown]
  - Insomnia [Unknown]
